FAERS Safety Report 7674531-5 (Version None)
Quarter: 2011Q3

REPORT INFORMATION
  Report Type: 
  Country: None (occurrence: None)
  Receive Date: 20110810
  Receipt Date: 20110801
  Transmission Date: 20111222
  Serious: Yes (Other)
  Sender: FDA-Public Use
  Company Number: PHHY2011US69530

PATIENT

DRUGS (1)
  1. TEKTURNA [Suspect]
     Dosage: 1 DF, QD

REACTIONS (2)
  - RENAL IMPAIRMENT [None]
  - CARDIAC DISORDER [None]
